FAERS Safety Report 7459748-7 (Version None)
Quarter: 2011Q2

REPORT INFORMATION
  Report Type: 
  Country: None (occurrence: None)
  Receive Date: 20110505
  Receipt Date: 20110502
  Transmission Date: 20111010
  Serious: Yes (Hospitalization)
  Sender: FDA-Public Use
  Company Number: FR-PURDUE-GBR-2011-0008134

PATIENT
  Sex: Female

DRUGS (8)
  1. LANTUS [Concomitant]
     Dosage: 16 IU, UNK
     Route: 058
  2. NOVORAPID [Concomitant]
     Dosage: UNK
     Route: 058
     Dates: start: 20110317
  3. OXYNORM 5 MG, GELULE [Suspect]
     Indication: PRODUCT USED FOR UNKNOWN INDICATION
     Dosage: 5 MG, BID
     Route: 048
     Dates: start: 20110326, end: 20110327
  4. XYZAL [Suspect]
     Indication: PRODUCT USED FOR UNKNOWN INDICATION
     Dosage: 5 MG, DAILY
     Route: 048
     Dates: start: 20110330, end: 20110402
  5. CEFTRIAXONE PANPHARMA [Suspect]
     Indication: PRODUCT USED FOR UNKNOWN INDICATION
     Dosage: 2 G, DAILY
     Route: 042
     Dates: start: 20110329, end: 20110406
  6. TOPALGIC LP [Suspect]
     Indication: PRODUCT USED FOR UNKNOWN INDICATION
     Dosage: 100 MG, BID
     Route: 048
     Dates: start: 20110325, end: 20110402
  7. VANCOMYCINE [Suspect]
     Indication: PRODUCT USED FOR UNKNOWN INDICATION
     Dosage: 2.5 G, DAILY
     Route: 042
     Dates: start: 20110325, end: 20110406
  8. DALACIN                            /00166002/ [Suspect]
     Indication: PRODUCT USED FOR UNKNOWN INDICATION
     Dosage: 300 MG, TID
     Route: 048
     Dates: start: 20110325, end: 20110329

REACTIONS (1)
  - HEPATITIS CHOLESTATIC [None]
